FAERS Safety Report 9386184 (Version 2)
Quarter: 2013Q3

REPORT INFORMATION
  Report Type: Spontaneous
  Country: US (occurrence: US)
  Receive Date: 20130707
  Receipt Date: 20130924
  Transmission Date: 20140515
  Serious: No
  Sender: FDA-Public Use
  Company Number: US-009507513-1307USA002121

PATIENT
  Sex: Female

DRUGS (3)
  1. PEG-INTRON [Suspect]
     Indication: HEPATITIS C
     Dosage: 0.96 MICROGRAM(0.4 ML), STRENGTH REPORTED AS 120 MCG/0.5 ML REDIPEN
     Route: 058
     Dates: start: 201306
  2. VICTRELIS [Suspect]
     Indication: HEPATITIS C
     Dosage: 800 MG, TID
     Route: 048
     Dates: start: 201306
  3. RIBAPAK [Suspect]
     Dosage: UNK, STRENGTH REPORTED AS 400/600 TABLETS

REACTIONS (11)
  - Arthropathy [Unknown]
  - Nervousness [Unknown]
  - Vomiting [Unknown]
  - Sleep disorder [Unknown]
  - Fatigue [Unknown]
  - Dyspnoea [Unknown]
  - Migraine [Unknown]
  - Nausea [Unknown]
  - Nausea [Recovering/Resolving]
  - Depression [Recovering/Resolving]
  - Abdominal pain upper [Recovering/Resolving]
